FAERS Safety Report 7906781-4 (Version None)
Quarter: 2011Q4

REPORT INFORMATION
  Report Type: 
  Country: None (occurrence: None)
  Receive Date: 20111110
  Receipt Date: 20111102
  Transmission Date: 20120403
  Serious: Yes (Congenital Anomaly, Other)
  Sender: FDA-Public Use
  Company Number: JP-JNJFOC-20101001440

PATIENT
  Sex: Male
  Weight: 3.21 kg

DRUGS (5)
  1. MAGNESIUM SULFATE [Interacting]
     Indication: FOETAL EXPOSURE DURING PREGNANCY
     Route: 064
  2. LIDOCAINE [Interacting]
     Indication: FOETAL EXPOSURE DURING PREGNANCY
     Route: 064
  3. SODIUM CHLORIDE [Interacting]
     Indication: FOETAL EXPOSURE DURING PREGNANCY
     Route: 064
  4. RISPERDAL [Suspect]
     Indication: FOETAL EXPOSURE DURING PREGNANCY
     Route: 064
  5. RITODRINE HYDROCHLORIDE [Interacting]
     Indication: FOETAL EXPOSURE DURING PREGNANCY
     Route: 064

REACTIONS (3)
  - DRUG INTERACTION [None]
  - FOETAL HEART RATE ABNORMAL [None]
  - APGAR SCORE LOW [None]
